FAERS Safety Report 15213701 (Version 1)
Quarter: 2018Q3

REPORT INFORMATION
  Report Type: Spontaneous
  Country: CA (occurrence: CA)
  Receive Date: 20180730
  Receipt Date: 20180730
  Transmission Date: 20181010
  Serious: Yes (Other)
  Sender: FDA-Public Use
  Company Number: CA-REGENERON PHARMACEUTICALS, INC.-2018-31037

PATIENT

DRUGS (2)
  1. EYLEA [Suspect]
     Active Substance: AFLIBERCEPT
     Dosage: BILATERAL INJECTION; DOSE, FREQUENCY AND TOTAL NUMBER OF DOSES UNKNOWN
     Route: 031
     Dates: start: 20180720
  2. EYLEA [Suspect]
     Active Substance: AFLIBERCEPT
     Indication: NEOVASCULAR AGE-RELATED MACULAR DEGENERATION
     Dosage: INJECTIONS INTO LEFT EYE; DOSE, FREQUENCY AND TOTAL NUMBER OF DOSES UNKNOWN
     Route: 031

REACTIONS (2)
  - Eye haemorrhage [Unknown]
  - Eye swelling [Unknown]
